FAERS Safety Report 22977191 (Version 3)
Quarter: 2024Q3

REPORT INFORMATION
  Report Type: Report from Study
  Country: US (occurrence: US)
  Receive Date: 20230925
  Receipt Date: 20240827
  Transmission Date: 20241017
  Serious: Yes (Hospitalization)
  Sender: SANDOZ
  Company Number: US-002147023-NVSC2022US158369

PATIENT
  Sex: Female
  Weight: 84.807 kg

DRUGS (12)
  1. ORENITRAM [Suspect]
     Active Substance: TREPROSTINIL
     Dosage: 1 MG
     Route: 065
  2. ORENITRAM [Suspect]
     Active Substance: TREPROSTINIL
     Dosage: 4 MG, TID
     Route: 048
  3. ORENITRAM [Suspect]
     Active Substance: TREPROSTINIL
     Indication: Pulmonary arterial hypertension
     Dosage: UNK (DOSE NOT SPECIFIED, MG)
     Route: 065
  4. TREPROSTINIL [Suspect]
     Active Substance: TREPROSTINIL
     Dosage: UNK UNK, CONT (5 NG/KG/MIN)
     Route: 058
     Dates: start: 20220623
  5. TREPROSTINIL [Suspect]
     Active Substance: TREPROSTINIL
     Dosage: UNK, CONT (29 NG/KG/MIN)
     Route: 058
     Dates: start: 20220623
  6. TREPROSTINIL [Suspect]
     Active Substance: TREPROSTINIL
     Dosage: UNK, CONT (40 NG/KG/ MIN)
     Route: 058
     Dates: start: 20220623
  7. TREPROSTINIL [Suspect]
     Active Substance: TREPROSTINIL
     Dosage: UNK, CONT (60 NG/KG/ MIN)
     Route: 058
     Dates: start: 20220623
  8. TREPROSTINIL [Suspect]
     Active Substance: TREPROSTINIL
     Dosage: UNK UNK, CONT 60 NG/KG/ MI N
     Route: 058
     Dates: start: 20220623
  9. TREPROSTINIL [Suspect]
     Active Substance: TREPROSTINIL
     Indication: Pulmonary arterial hypertension
     Dosage: UNK UNK, CONT
     Route: 058
     Dates: start: 20220613
  10. OPSUMIT [Concomitant]
     Active Substance: MACITENTAN
     Indication: Product used for unknown indication
     Dosage: UNK
     Route: 065
  11. TADALAFIL [Concomitant]
     Active Substance: TADALAFIL
     Indication: Product used for unknown indication
     Route: 065
  12. TADALAFIL [Concomitant]
     Active Substance: TADALAFIL
     Indication: Product used for unknown indication
     Route: 065

REACTIONS (19)
  - Oxygen saturation abnormal [Unknown]
  - Back pain [Unknown]
  - Feeling abnormal [Unknown]
  - Malaise [Unknown]
  - Gait disturbance [Unknown]
  - Injection site irritation [Recovered/Resolved]
  - Nausea [Recovered/Resolved]
  - Headache [Recovered/Resolved]
  - Abdominal pain lower [Unknown]
  - Chest pain [Unknown]
  - Diarrhoea [Unknown]
  - Fatigue [Unknown]
  - Injection site pain [Unknown]
  - Injection site erythema [Recovered/Resolved]
  - Injection site induration [Recovered/Resolved]
  - Abdominal pain [Unknown]
  - Abdominal discomfort [Unknown]
  - Injection site erythema [Unknown]
  - Injection site swelling [Unknown]
